FAERS Safety Report 5001587-0 (Version None)
Quarter: 2006Q2

REPORT INFORMATION
  Report Type: 
  Country: None (occurrence: None)
  Receive Date: 20060511
  Receipt Date: 20060511
  Transmission Date: 20061013
  Serious: Yes (Other)
  Sender: FDA-Public Use
  Company Number: None

PATIENT
  Age: 72 Year
  Sex: Female

DRUGS (1)
  1. CIPRO [Suspect]
     Indication: SURGERY
     Dosage: TOOK 2 DOSES
     Dates: start: 20060220, end: 20060221

REACTIONS (3)
  - ANXIETY [None]
  - CONFUSIONAL STATE [None]
  - HALLUCINATION [None]
